FAERS Safety Report 5368532-X (Version None)
Quarter: 2007Q2

REPORT INFORMATION
  Report Type: 
  Country: None (occurrence: None)
  Receive Date: 20070621
  Receipt Date: 20060901
  Transmission Date: 20071010
  Serious: No
  Sender: FDA-Public Use
  Company Number: 002#2#2006-00268

PATIENT
  Age: 73 Year
  Sex: Male
  Weight: 79.3795 kg

DRUGS (3)
  1. UNIVASC [Suspect]
     Indication: HYPERTENSION
     Dosage: SEE IMAGE
     Route: 048
     Dates: start: 20060830, end: 20060901
  2. UNIVASC [Suspect]
     Indication: HYPERTENSION
     Dosage: SEE IMAGE
     Route: 048
     Dates: start: 20060830, end: 20060901
  3. UNIVASC [Suspect]
     Indication: HYPERTENSION
     Dosage: SEE IMAGE
     Route: 048
     Dates: start: 20060902

REACTIONS (3)
  - ABDOMINAL DISTENSION [None]
  - DYSGEUSIA [None]
  - NAUSEA [None]
